FAERS Safety Report 7829228-5 (Version None)
Quarter: 2011Q4

REPORT INFORMATION
  Report Type: 
  Country: None (occurrence: None)
  Receive Date: 20111020
  Receipt Date: 20111007
  Transmission Date: 20120403
  Serious: Yes (Other)
  Sender: FDA-Public Use
  Company Number: US-BAYER-2010-009196

PATIENT
  Age: 43 Year
  Sex: Female

DRUGS (7)
  1. CIPROFLOXACIN [Concomitant]
  2. FLOMAX [Concomitant]
  3. ZYRTEC [Concomitant]
  4. BENTYL [Concomitant]
  5. YASMIN [Suspect]
     Indication: PREMENSTRUAL SYNDROME
     Dosage: UNK
     Dates: start: 20030416
  6. XANAX [Concomitant]
  7. ATIVAN [Concomitant]

REACTIONS (3)
  - PAIN [None]
  - DEEP VEIN THROMBOSIS [None]
  - INJURY [None]
